FAERS Safety Report 7468705-6 (Version None)
Quarter: 2011Q2

REPORT INFORMATION
  Report Type: 
  Country: None (occurrence: None)
  Receive Date: 20110510
  Receipt Date: 20110502
  Transmission Date: 20111010
  Serious: No
  Sender: FDA-Public Use
  Company Number: US-BIOGENIDEC-2011BI005076

PATIENT
  Age: 51 Year
  Sex: Female

DRUGS (2)
  1. TYSABRI [Suspect]
     Indication: MULTIPLE SCLEROSIS
     Route: 042
     Dates: start: 20101206
  2. AVONEX [Concomitant]
     Indication: MULTIPLE SCLEROSIS
     Route: 030
     Dates: start: 20070226

REACTIONS (7)
  - PAIN IN EXTREMITY [None]
  - FATIGUE [None]
  - MUSCULAR WEAKNESS [None]
  - DIZZINESS [None]
  - COGNITIVE DISORDER [None]
  - HEADACHE [None]
  - VULVOVAGINAL PRURITUS [None]
